FAERS Safety Report 13046150 (Version 3)
Quarter: 2018Q1

REPORT INFORMATION
  Report Type: Report from Study
  Country: US (occurrence: US)
  Receive Date: 20161220
  Receipt Date: 20180214
  Transmission Date: 20180508
  Serious: Yes (Other)
  Sender: FDA-Public Use
  Company Number: PHEH2016US033068

PATIENT
  Sex: Female

DRUGS (1)
  1. AFINITOR [Suspect]
     Active Substance: EVEROLIMUS
     Indication: ASTROCYTOMA, LOW GRADE
     Dosage: 7.5 MG, QD
     Route: 048
     Dates: start: 20140315

REACTIONS (9)
  - Renal neoplasm [Recovering/Resolving]
  - Protein total decreased [Unknown]
  - Brain neoplasm [Recovering/Resolving]
  - Contusion [Not Recovered/Not Resolved]
  - Blood chloride increased [Unknown]
  - Blood creatinine decreased [Unknown]
  - Pancreatic neoplasm [Recovering/Resolving]
  - Amylase decreased [Unknown]
  - Blood alkaline phosphatase increased [Unknown]
